FAERS Safety Report 6902510-1 (Version None)
Quarter: 2010Q3

REPORT INFORMATION
  Report Type: 
  Country: None (occurrence: None)
  Receive Date: 20100730
  Receipt Date: 20100726
  Transmission Date: 20110219
  Serious: Yes (Death)
  Sender: FDA-Public Use
  Company Number: 2010SP040857

PATIENT
  Age: 39 Year
  Sex: Male

DRUGS (6)
  1. MIRTAZAPINE [Suspect]
     Indication: DEPRESSION
     Dosage: 15 MG;QD;PO ; 7.5 MG;QD;PO
     Route: 048
     Dates: start: 20100720, end: 20100722
  2. MIRTAZAPINE [Suspect]
     Indication: INSOMNIA
     Dosage: 15 MG;QD;PO ; 7.5 MG;QD;PO
     Route: 048
     Dates: start: 20100720, end: 20100722
  3. MIRTAZAPINE [Suspect]
     Indication: DEPRESSION
     Dosage: 15 MG;QD;PO ; 7.5 MG;QD;PO
     Route: 048
     Dates: start: 20100723, end: 20100725
  4. MIRTAZAPINE [Suspect]
     Indication: INSOMNIA
     Dosage: 15 MG;QD;PO ; 7.5 MG;QD;PO
     Route: 048
     Dates: start: 20100723, end: 20100725
  5. ZOLPIDEM TARTRATE [Suspect]
     Indication: PRODUCT USED FOR UNKNOWN INDICATION
     Dosage: 10 MG;QD;PO
     Route: 048
     Dates: start: 20100720, end: 20100725
  6. LEXOTAN (BROMAZEPAM) [Suspect]
     Indication: PRODUCT USED FOR UNKNOWN INDICATION
     Dosage: 2 MG;PRN;PO
     Route: 048
     Dates: start: 20100720, end: 20100725

REACTIONS (8)
  - AGGRESSION [None]
  - ANXIETY [None]
  - COMPLETED SUICIDE [None]
  - FEELING GUILTY [None]
  - IRRITABILITY [None]
  - NERVOUSNESS [None]
  - REFUSAL OF TREATMENT BY RELATIVE [None]
  - SUICIDAL IDEATION [None]
